FAERS Safety Report 21798419 (Version 1)
Quarter: 2022Q4

REPORT INFORMATION
  Report Type: Other
  Country: GB (occurrence: GB)
  Receive Date: 20221230
  Receipt Date: 20221230
  Transmission Date: 20230113
  Serious: Yes (Death, Other)
  Sender: FDA-Public Use
  Company Number: None

PATIENT
  Age: 48 Year
  Sex: Male
  Weight: 70 kg

DRUGS (2)
  1. GABAPENTIN [Suspect]
     Active Substance: GABAPENTIN
     Indication: Analgesic therapy
     Dosage: 900 MILLIGRAM (DOSE WAS 300MG X 3 PER DAY) CAPSULE
     Route: 065
     Dates: start: 20191014
  2. FLUOXETINE [Concomitant]
     Active Substance: FLUOXETINE HYDROCHLORIDE
     Indication: Bipolar disorder
     Dosage: 40 MILLIGRAM, PER DAY (TAKING FOR MANY YEARS, 10+)
     Route: 065

REACTIONS (5)
  - Completed suicide [Fatal]
  - Suicidal ideation [Fatal]
  - Asphyxia [Fatal]
  - Brain injury [Fatal]
  - Condition aggravated [Fatal]
